FAERS Safety Report 19021060 (Version 1)
Quarter: 2021Q1

REPORT INFORMATION
  Report Type: Spontaneous
  Country: CA (occurrence: CA)
  Receive Date: 20210317
  Receipt Date: 20210317
  Transmission Date: 20210420
  Serious: Yes (Other)
  Sender: FDA-Public Use
  Company Number: CA-B.I. PHARMACEUTICALS,INC./RIDGEFIELD-2021-BI-089989

PATIENT
  Age: 36 Year
  Sex: Female

DRUGS (7)
  1. SPIRIVA [Suspect]
     Active Substance: TIOTROPIUM BROMIDE MONOHYDRATE
     Indication: PRODUCT USED FOR UNKNOWN INDICATION
     Dosage: 1 DOSAGE FORM
  2. ATROVENT [Suspect]
     Active Substance: IPRATROPIUM BROMIDE
     Indication: PRODUCT USED FOR UNKNOWN INDICATION
  3. SINGULAIR [Suspect]
     Active Substance: MONTELUKAST SODIUM
     Indication: PRODUCT USED FOR UNKNOWN INDICATION
  4. CETRIZINE [Concomitant]
     Active Substance: CETIRIZINE HYDROCHLORIDE
     Indication: PRODUCT USED FOR UNKNOWN INDICATION
  5. SALBUTAMOL SULPHATE [Suspect]
     Active Substance: ALBUTEROL SULFATE
     Indication: ASTHMA
  6. MONTELUKAST [Suspect]
     Active Substance: MONTELUKAST SODIUM
     Indication: PRODUCT USED FOR UNKNOWN INDICATION
  7. BUDESONIDE;FORMOTEROL FUMARATE [Suspect]
     Active Substance: BUDESONIDE\FORMOTEROL FUMARATE
     Indication: PRODUCT USED FOR UNKNOWN INDICATION
     Dosage: 2 DOSAGE FORM
     Route: 055

REACTIONS (24)
  - Bronchitis [Unknown]
  - Hypertension [Unknown]
  - Angioedema [Unknown]
  - Infection [Unknown]
  - Pharyngitis streptococcal [Unknown]
  - Obesity [Unknown]
  - Wheezing [Unknown]
  - Asthma [Unknown]
  - Blood immunoglobulin E increased [Unknown]
  - Cholelithiasis [Unknown]
  - Cough [Unknown]
  - Urticaria [Unknown]
  - Allergic sinusitis [Unknown]
  - Chest discomfort [Unknown]
  - Dyspnoea [Unknown]
  - Productive cough [Unknown]
  - Bronchial hyperreactivity [Unknown]
  - Ear pain [Unknown]
  - Oropharyngeal pain [Unknown]
  - Breathing-related sleep disorder [Unknown]
  - Eosinophilia [Unknown]
  - Type 2 diabetes mellitus [Unknown]
  - Depression [Unknown]
  - Therapeutic product effect incomplete [Unknown]
